FAERS Safety Report 13879062 (Version 1)
Quarter: 2017Q3

REPORT INFORMATION
  Report Type: Report from Study
  Country: US (occurrence: US)
  Receive Date: 20170817
  Receipt Date: 20170817
  Transmission Date: 20171127
  Serious: Yes (Hospitalization)
  Sender: FDA-Public Use
  Company Number: US-ACTELION-A-US2017-158075

PATIENT
  Age: 71 Year
  Sex: Female

DRUGS (20)
  1. OPSUMIT [Suspect]
     Active Substance: MACITENTAN
     Indication: PULMONARY ARTERIAL HYPERTENSION
     Dosage: 10 MG, QD
     Route: 048
     Dates: start: 20170623
  2. MONTELUKAST [Concomitant]
     Active Substance: MONTELUKAST SODIUM
  3. XARELTO [Concomitant]
     Active Substance: RIVAROXABAN
  4. PREDNISONE. [Concomitant]
     Active Substance: PREDNISONE
  5. LEVALBUTEROL. [Concomitant]
     Active Substance: LEVALBUTEROL
  6. LEVOFLOXACIN. [Concomitant]
     Active Substance: LEVOFLOXACIN
  7. FUROSEMIDE. [Concomitant]
     Active Substance: FUROSEMIDE
  8. POTASSIUM CHLORIDE. [Concomitant]
     Active Substance: POTASSIUM CHLORIDE
  9. CLONIDINE. [Concomitant]
     Active Substance: CLONIDINE
  10. DIGOX [Concomitant]
     Active Substance: DIGOXIN
  11. DIPHENHYDRAMINE. [Concomitant]
     Active Substance: DIPHENHYDRAMINE
  12. ATROPINE. [Concomitant]
     Active Substance: ATROPINE
  13. PULMICORT TURBUHALER [Concomitant]
     Active Substance: BUDESONIDE
  14. LYRICA [Concomitant]
     Active Substance: PREGABALIN
  15. AMOXICILLIN/CLAV POT [Concomitant]
  16. ZOLPIDEM [Concomitant]
     Active Substance: ZOLPIDEM\ZOLPIDEM TARTRATE
  17. PANTOPRAZOLE [Concomitant]
     Active Substance: PANTOPRAZOLE
  18. SYMBICORT [Concomitant]
     Active Substance: BUDESONIDE\FORMOTEROL FUMARATE DIHYDRATE
  19. SILDENAFIL. [Concomitant]
     Active Substance: SILDENAFIL
  20. CARVEDILOL. [Concomitant]
     Active Substance: CARVEDILOL

REACTIONS (1)
  - Fall [Recovering/Resolving]

NARRATIVE: CASE EVENT DATE: 20170714
